FAERS Safety Report 5060638-8 (Version None)
Quarter: 2006Q2

REPORT INFORMATION
  Report Type: 
  Country: None (occurrence: None)
  Receive Date: 20060630
  Receipt Date: 20060103
  Transmission Date: 20061013
  Serious: Yes (Hospitalization)
  Sender: FDA-Public Use
  Company Number: US200511002525

PATIENT
  Sex: Male

DRUGS (1)
  1. HUMALOG [Suspect]

REACTIONS (1)
  - BLOOD GLUCOSE INCREASED [None]
